FAERS Safety Report 11844977 (Version 1)
Quarter: 2015Q4

REPORT INFORMATION
  Report Type: Spontaneous
  Country: US (occurrence: None)
  Receive Date: 20151216
  Receipt Date: 20151216
  Transmission Date: 20160305
  Serious: Yes (Other)
  Sender: FDA-Public Use
  Company Number: None

PATIENT
  Age: 66 Year
  Sex: Female

DRUGS (1)
  1. PROLIA [Suspect]
     Active Substance: DENOSUMAB
     Indication: SENILE OSTEOPOROSIS
     Route: 058
     Dates: start: 20140307

REACTIONS (3)
  - Respiratory disorder [None]
  - Diabetes mellitus [None]
  - Myocardial infarction [None]

NARRATIVE: CASE EVENT DATE: 20151202
